FAERS Safety Report 10759835 (Version 1)
Quarter: 2015Q1

REPORT INFORMATION
  Report Type: Other
  Country: DE (occurrence: DE)
  Receive Date: 20150203
  Receipt Date: 20150203
  Transmission Date: 20150721
  Serious: Yes (Congenital Anomaly, Other)
  Sender: FDA-Public Use
  Company Number: DE-MYLANLABS-2015M1001951

PATIENT

DRUGS (3)
  1. AMITRIPTYLIN [Suspect]
     Active Substance: AMITRIPTYLINE
     Indication: DEPRESSION
     Dosage: 10 MG, QD (10 [MG/D ])
     Route: 064
     Dates: start: 20130907, end: 20140608
  2. OLANZAPINE. [Suspect]
     Active Substance: OLANZAPINE
     Indication: SLEEP DISORDER
     Dosage: 2.5 MG, QD (2.5 [MG/D ])
     Route: 064
  3. ASS 100 [Concomitant]
     Active Substance: ASPIRIN
     Indication: ULTRASOUND DOPPLER ABNORMAL
     Dosage: 100 [MG/D ]
     Route: 064
     Dates: start: 20140130, end: 20140513

REACTIONS (3)
  - Foetal exposure during pregnancy [Unknown]
  - Small for dates baby [Unknown]
  - Cleft lip [Unknown]

NARRATIVE: CASE EVENT DATE: 20140608
